FAERS Safety Report 8448424-X (Version None)
Quarter: 2012Q2

REPORT INFORMATION
  Report Type: 
  Country: None (occurrence: None)
  Receive Date: 20120619
  Receipt Date: 20120607
  Transmission Date: 20120825
  Serious: Yes (Other)
  Sender: FDA-Public Use
  Company Number: JP-VERTEX PHARMACEUTICALS INC.-AE-2012-007911

PATIENT
  Age: 45 Year
  Sex: Female

DRUGS (7)
  1. RIBAVIRIN [Concomitant]
     Indication: HEPATITIS C
     Route: 048
     Dates: start: 20120322
  2. PEG-INTRON [Concomitant]
     Route: 051
     Dates: start: 20120418
  3. URSO 250 [Concomitant]
     Route: 048
  4. PEG-INTRON [Concomitant]
     Indication: HEPATITIS C
     Route: 051
     Dates: start: 20120322, end: 20120411
  5. TELAVIC (TELAPREVIR) [Suspect]
     Indication: HEPATITIS C
     Route: 048
     Dates: start: 20120322
  6. PYDOXAL [Concomitant]
     Route: 048
     Dates: start: 20120322
  7. VOLTAREN [Concomitant]
     Route: 054
     Dates: start: 20120328

REACTIONS (1)
  - WHITE BLOOD CELL COUNT DECREASED [None]
